FAERS Safety Report 14032596 (Version 2)
Quarter: 2017Q4

REPORT INFORMATION
  Report Type: Spontaneous
  Country: IT (occurrence: IT)
  Receive Date: 20171003
  Receipt Date: 20171009
  Transmission Date: 20180321
  Serious: Yes (Other)
  Sender: FDA-Public Use
  Company Number: IT-ACCORD-044471

PATIENT
  Age: 57 Year
  Sex: Female
  Weight: 44 kg

DRUGS (4)
  1. AVASTIN [Suspect]
     Active Substance: BEVACIZUMAB
     Indication: ADENOCARCINOMA OF COLON
     Dosage: THE PATIENT UNDERWENT FOLFOX + AVASTIN CYCLE 2 AND 6.
     Route: 042
     Dates: start: 20160804
  2. OXALIPLATIN. [Suspect]
     Active Substance: OXALIPLATIN
     Indication: ADENOCARCINOMA OF COLON
     Dosage: THE PATIENT UNDERWENT FOLFOX + AVASTIN CYCLE 2 AND 6.
     Route: 042
     Dates: start: 20160804
  3. FLUOROURACIL. [Suspect]
     Active Substance: FLUOROURACIL
     Indication: ADENOCARCINOMA OF COLON
     Dosage: ALSO RECEIVED IV FLUOROURACIL AT 3360 MG.?THE PATIENT UNDERWENT FOLFOX + AVASTIN CYCLE 2 AND 6.
     Route: 040
     Dates: start: 20160804
  4. LEDERFOLIN [Concomitant]
     Active Substance: LEUCOVORIN CALCIUM
     Indication: ADENOCARCINOMA OF COLON
     Route: 042
     Dates: start: 20160804, end: 20160818

REACTIONS (4)
  - Anaemia [Unknown]
  - Infusion related reaction [Recovering/Resolving]
  - Constipation [Recovering/Resolving]
  - Thrombocytopenia [Recovering/Resolving]

NARRATIVE: CASE EVENT DATE: 20160804
